FAERS Safety Report 9239485 (Version 1)
Quarter: 2013Q2

REPORT INFORMATION
  Report Type: Spontaneous
  Country: US (occurrence: US)
  Receive Date: 20130418
  Receipt Date: 20130418
  Transmission Date: 20140414
  Serious: No
  Sender: FDA-Public Use
  Company Number: US-SANOFI-AVENTIS-2012SA035144

PATIENT
  Age: 63 Year
  Sex: Female

DRUGS (4)
  1. ENOXAPARIN SODIUM - WINTHROP [Suspect]
     Indication: POSTOPERATIVE CARE
     Route: 065
     Dates: start: 20120502, end: 20120508
  2. ENOXAPARIN SODIUM - WINTHROP [Suspect]
     Indication: THROMBOSIS PROPHYLAXIS
     Route: 065
     Dates: start: 20120502, end: 20120508
  3. ENOXAPARIN SODIUM - WINTHROP [Suspect]
     Indication: POSTOPERATIVE CARE
     Route: 065
     Dates: start: 20120509
  4. ENOXAPARIN SODIUM - WINTHROP [Suspect]
     Indication: THROMBOSIS PROPHYLAXIS
     Route: 065
     Dates: start: 20120509

REACTIONS (4)
  - Vertigo [Unknown]
  - Feeling abnormal [Unknown]
  - Dizziness [Unknown]
  - Dyspepsia [Unknown]
